FAERS Safety Report 10019365 (Version 1)
Quarter: 2014Q1

REPORT INFORMATION
  Report Type: Report from Study
  Country: US (occurrence: US)
  Receive Date: 20140318
  Receipt Date: 20140318
  Transmission Date: 20141002
  Serious: Yes (Death)
  Sender: FDA-Public Use
  Company Number: US-TMC-CABO 14004093

PATIENT
  Sex: Male

DRUGS (4)
  1. CABOZANTINIB [Suspect]
     Indication: PROSTATE CANCER
     Dosage: 100 MG, QD
     Route: 048
     Dates: start: 20140129, end: 201402
  2. HYDROMORPHONE [Concomitant]
  3. NAPROSYN [Concomitant]
  4. ALLOPURINOL [Concomitant]

REACTIONS (2)
  - Death [Fatal]
  - Off label use [Unknown]
